FAERS Safety Report 5156069-2 (Version None)
Quarter: 2006Q4

REPORT INFORMATION
  Report Type: 
  Country: None (occurrence: None)
  Receive Date: 20061122
  Receipt Date: 20060814
  Transmission Date: 20070319
  Serious: Yes (Hospitalization)
  Sender: FDA-Public Use
  Company Number: NO-ROCHE-459762

PATIENT
  Age: 80 Year
  Sex: Female

DRUGS (8)
  1. XENICAL [Suspect]
     Indication: WEIGHT CONTROL
     Route: 048
     Dates: start: 20060323, end: 20060615
  2. ESCITALOPRAM OXALATE [Concomitant]
     Route: 048
  3. COZAAR [Concomitant]
     Route: 048
  4. ZYRTEC [Concomitant]
     Route: 048
  5. ALBYL-E [Concomitant]
     Route: 048
  6. IMOVANE [Concomitant]
  7. TRIOBE [Concomitant]
  8. GLUCOSAMINE [Concomitant]
     Dosage: DRUG REPORTED AS MOVERE

REACTIONS (2)
  - DIVERTICULITIS [None]
  - LIPOMA [None]
